FAERS Safety Report 19854068 (Version 1)
Quarter: 2021Q3

REPORT INFORMATION
  Report Type: Other
  Country: US (occurrence: US)
  Receive Date: 20210920
  Receipt Date: 20210920
  Transmission Date: 20211014
  Serious: Yes (Other)
  Sender: FDA-Public Use
  Company Number: US-ROCHE-2909768

PATIENT
  Sex: Female

DRUGS (1)
  1. XELODA [Suspect]
     Active Substance: CAPECITABINE
     Indication: BREAST CANCER FEMALE
     Dosage: TAKE 4 TABLET(S) BY MOUTH IN THE MORNING AND TAKE 3 TABLET(S) BY MOUTH IN THE EVENING 2 WEEK(S) ON,
     Route: 048

REACTIONS (5)
  - Cardiac failure [Unknown]
  - Gait disturbance [Unknown]
  - Diabetes mellitus [Unknown]
  - Neoplasm malignant [Unknown]
  - Asthma [Unknown]
